FAERS Safety Report 8615398-8 (Version None)
Quarter: 2012Q3

REPORT INFORMATION
  Report Type: 
  Country: None (occurrence: None)
  Receive Date: 20120823
  Receipt Date: 20120814
  Transmission Date: 20120928
  Serious: Yes (Hospitalization, Other)
  Sender: FDA-Public Use
  Company Number: US-009507513-1203USA01846

PATIENT

DRUGS (9)
  1. PRILOSEC [Concomitant]
     Indication: BARRETT'S OESOPHAGUS
  2. FOSAMAX [Suspect]
     Indication: OSTEOPOROSIS
     Dosage: 70 MG, QW
     Route: 048
     Dates: end: 20100901
  3. FOSAMAX [Suspect]
     Dosage: 35 MG, QD
     Route: 048
  4. PREMARIN [Concomitant]
     Indication: HORMONE REPLACEMENT THERAPY
     Dates: start: 19800101, end: 20100101
  5. FOSAMAX [Suspect]
     Dosage: 5 MG, QD
     Route: 048
     Dates: start: 19980713
  6. CLIMARA [Concomitant]
     Indication: MENOPAUSE
  7. PEPCID [Concomitant]
     Indication: GASTROOESOPHAGEAL REFLUX DISEASE
     Dosage: UNK, BID
  8. PRILOSEC [Concomitant]
     Indication: GASTROOESOPHAGEAL REFLUX DISEASE
     Dates: start: 19930101, end: 19980101
  9. ESTRATEST [Concomitant]
     Dosage: UNK
     Dates: start: 19830101, end: 20030101

REACTIONS (21)
  - OSTEOARTHRITIS [None]
  - AUTONOMIC NERVOUS SYSTEM IMBALANCE [None]
  - DERMAL CYST [None]
  - DEPRESSION [None]
  - ASTHMA [None]
  - SHOULDER OPERATION [None]
  - ANXIETY [None]
  - OSTEOPENIA [None]
  - ATROPHIC VULVOVAGINITIS [None]
  - VULVOVAGINAL PRURITUS [None]
  - FEMUR FRACTURE [None]
  - GASTROOESOPHAGEAL REFLUX DISEASE [None]
  - EMOTIONAL DISTRESS [None]
  - DYSPHAGIA [None]
  - GASTRITIS [None]
  - OESOPHAGITIS [None]
  - HYPERCHOLESTEROLAEMIA [None]
  - QUALITY OF LIFE DECREASED [None]
  - WEIGHT DECREASED [None]
  - STRESS URINARY INCONTINENCE [None]
  - BACK PAIN [None]
